FAERS Safety Report 6937003-9 (Version None)
Quarter: 2010Q3

REPORT INFORMATION
  Report Type: 
  Country: None (occurrence: None)
  Receive Date: 20100823
  Receipt Date: 20100809
  Transmission Date: 20110219
  Serious: Yes (Other)
  Sender: FDA-Public Use
  Company Number: PHHY2010JP16615

PATIENT
  Sex: Male

DRUGS (1)
  1. GLEEVEC [Suspect]
     Indication: CHRONIC MYELOID LEUKAEMIA
     Dosage: 300 MG
     Route: 048

REACTIONS (4)
  - CEREBRAL ARTERY EMBOLISM [None]
  - CEREBRAL INFARCTION [None]
  - DECREASED APPETITE [None]
  - HEADACHE [None]
